FAERS Safety Report 12732934 (Version 1)
Quarter: 2016Q3

REPORT INFORMATION
  Report Type: Spontaneous
  Country: US (occurrence: US)
  Receive Date: 20160911
  Receipt Date: 20160911
  Transmission Date: 20161109
  Serious: Yes (Other)
  Sender: FDA-Public Use
  Company Number: None

PATIENT
  Age: 55 Year
  Sex: Female
  Weight: 103.5 kg

DRUGS (1)
  1. MONTELUKAST SODIUM 10MG [Suspect]
     Active Substance: MONTELUKAST SODIUM
     Indication: ASTHMA
     Dosage: 30 TABLET DAILY ORAL
     Route: 048
     Dates: start: 20160905, end: 20160911

REACTIONS (12)
  - Erythema [None]
  - Dyspnoea [None]
  - Headache [None]
  - Rhinorrhoea [None]
  - Nausea [None]
  - Swelling face [None]
  - Pruritus [None]
  - Lymphadenopathy [None]
  - Sneezing [None]
  - Local swelling [None]
  - Therapy non-responder [None]
  - Oropharyngeal pain [None]

NARRATIVE: CASE EVENT DATE: 20160910
